FAERS Safety Report 6850461-3 (Version None)
Quarter: 2010Q3

REPORT INFORMATION
  Report Type: 
  Country: None (occurrence: None)
  Receive Date: 20100716
  Receipt Date: 20071017
  Transmission Date: 20110219
  Serious: No
  Sender: FDA-Public Use
  Company Number: US-PFIZER INC-2007088871

PATIENT
  Sex: Female
  Weight: 90.9 kg

DRUGS (1)
  1. CHANTIX [Suspect]
     Indication: SMOKING CESSATION THERAPY
     Dates: start: 20070101

REACTIONS (7)
  - FATIGUE [None]
  - HYPERSOMNIA [None]
  - INFLUENZA LIKE ILLNESS [None]
  - MALAISE [None]
  - MUSCULAR WEAKNESS [None]
  - SOMNOLENCE [None]
  - UNEVALUABLE EVENT [None]
